FAERS Safety Report 16924531 (Version 1)
Quarter: 2019Q4

REPORT INFORMATION
  Report Type: Spontaneous
  Country: US (occurrence: US)
  Receive Date: 20191016
  Receipt Date: 20191016
  Transmission Date: 20200122
  Serious: Yes (Other)
  Sender: FDA-Public Use
  Company Number: US-TEVA-2019-US-1122635

PATIENT
  Age: 63 Year
  Sex: Female
  Weight: 87 kg

DRUGS (14)
  1. LEVOTHYROXINE. [Concomitant]
     Active Substance: LEVOTHYROXINE
  2. AJOVY [Suspect]
     Active Substance: FREMANEZUMAB-VFRM
     Indication: MIGRAINE
     Dosage: LAST INJECTION ON 15-SEP-2019; MONTHLY
     Dates: start: 20190815
  3. CLARITIN [Concomitant]
     Active Substance: LORATADINE
  4. LEXAPRO [Concomitant]
     Active Substance: ESCITALOPRAM OXALATE
     Indication: MIGRAINE
  5. LASIX [Concomitant]
     Active Substance: FUROSEMIDE
  6. POTASSIUM CHLORIDE. [Concomitant]
     Active Substance: POTASSIUM CHLORIDE
  7. ZYRTEC [Concomitant]
     Active Substance: CETIRIZINE HYDROCHLORIDE
  8. BENADRYL [Concomitant]
     Active Substance: DIPHENHYDRAMINE HYDROCHLORIDE
  9. TOPAMAX [Concomitant]
     Active Substance: TOPIRAMATE
     Indication: MIGRAINE
  10. SENSIPAR [Concomitant]
     Active Substance: CINACALCET HYDROCHLORIDE
  11. PEPCID [Concomitant]
     Active Substance: FAMOTIDINE
  12. POTASSIUM CITRATE. [Concomitant]
     Active Substance: POTASSIUM CITRATE
     Indication: RENAL LITHIASIS PROPHYLAXIS
  13. ZOCOR [Concomitant]
     Active Substance: SIMVASTATIN
  14. ZETIA [Concomitant]
     Active Substance: EZETIMIBE

REACTIONS (9)
  - Back pain [Recovering/Resolving]
  - Gastrointestinal oedema [Recovered/Resolved]
  - Sitting disability [Unknown]
  - Lymph node pain [Not Recovered/Not Resolved]
  - Lymphadenitis [Unknown]
  - Bedridden [Recovered/Resolved]
  - Mesenteric panniculitis [Recovered/Resolved]
  - Nephrolithiasis [Unknown]
  - Lichen planus [Unknown]

NARRATIVE: CASE EVENT DATE: 201909
